FAERS Safety Report 15739886 (Version 1)
Quarter: 2018Q4

REPORT INFORMATION
  Report Type: Spontaneous
  Country: US (occurrence: US)
  Receive Date: 20181219
  Receipt Date: 20181219
  Transmission Date: 20190205
  Serious: No
  Sender: FDA-Public Use
  Company Number: US-SA-2018SA338545

PATIENT
  Sex: Male

DRUGS (1)
  1. GOLD BOND INTENSIVE HEALING ANTI ITCH SKIN PROTECTANT [Suspect]
     Active Substance: DIMETHICONE\PRAMOXINE HYDROCHLORIDE
     Indication: SKIN FISSURES
     Dosage: UNK

REACTIONS (2)
  - Product odour abnormal [Unknown]
  - Expired product administered [Unknown]
